FAERS Safety Report 4442394-7 (Version None)
Quarter: 2004Q3

REPORT INFORMATION
  Report Type: 
  Country: None (occurrence: None)
  Receive Date: 20040903
  Receipt Date: 20040506
  Transmission Date: 20050211
  Serious: Yes (Other)
  Sender: FDA-Public Use
  Company Number: 2004UW09484

PATIENT
  Age: 61 Year
  Sex: Female
  Weight: 68.0396 kg

DRUGS (7)
  1. CRESTOR [Suspect]
     Indication: HYPERCHOLESTEROLAEMIA
     Dosage: 10 MG PO
     Route: 048
     Dates: start: 20040401
  2. LITHIUM [Concomitant]
  3. TRAZODONE HCL [Concomitant]
  4. RISPERDAL [Concomitant]
  5. LEVOXYL [Concomitant]
  6. LORAZEPAM [Concomitant]
  7. ZOLOFT [Concomitant]

REACTIONS (1)
  - VISION BLURRED [None]
